FAERS Safety Report 12989035 (Version 1)
Quarter: 2016Q4

REPORT INFORMATION
  Report Type: Spontaneous
  Country: IT (occurrence: IT)
  Receive Date: 20161201
  Receipt Date: 20161201
  Transmission Date: 20170207
  Serious: Yes (Hospitalization)
  Sender: FDA-Public Use
  Company Number: IT-ROCHE-1860732

PATIENT
  Age: 52 Year
  Sex: Male

DRUGS (3)
  1. PAROXETINE. [Concomitant]
     Active Substance: PAROXETINE
     Route: 048
     Dates: start: 20150101
  2. DEPAKIN [Concomitant]
     Active Substance: VALPROATE SODIUM
     Route: 048
     Dates: start: 20151001
  3. RIVOTRIL [Suspect]
     Active Substance: CLONAZEPAM
     Indication: ANXIETY
     Dosage: ^2 MG TABLETS^ 20 TABLETS (MISUSED DOSE)
     Route: 048
     Dates: start: 20161021, end: 20161021

REACTIONS (5)
  - Intentional self-injury [Unknown]
  - Intentional product misuse [Unknown]
  - Bradyphrenia [Recovered/Resolved]
  - Overdose [Unknown]
  - Motor dysfunction [Recovered/Resolved]

NARRATIVE: CASE EVENT DATE: 20161021
